FAERS Safety Report 7640286-3 (Version None)
Quarter: 2011Q3

REPORT INFORMATION
  Report Type: 
  Country: None (occurrence: None)
  Receive Date: 20110728
  Receipt Date: 20101021
  Transmission Date: 20111222
  Serious: Yes (Hospitalization, Other)
  Sender: FDA-Public Use
  Company Number: US-BAYER-201013962NA

PATIENT
  Age: 39 Year
  Sex: Female
  Weight: 60 kg

DRUGS (8)
  1. ADVAIR DISKUS 100/50 [Concomitant]
  2. IBUPROFEN [Concomitant]
  3. FLOVENT [Concomitant]
  4. SINGULAIR [Concomitant]
  5. ALBUTEROL SULFATE AUTOHALER [Concomitant]
  6. YAZ [Suspect]
     Indication: CONTRACEPTION
     Route: 048
     Dates: start: 20060101, end: 20080101
  7. CALCIUM CARBONATE [Concomitant]
  8. MYLANTA [Concomitant]

REACTIONS (3)
  - CHOLELITHIASIS [None]
  - CHOLECYSTITIS CHRONIC [None]
  - CHOLECYSTECTOMY [None]
